FAERS Safety Report 20077764 (Version 1)
Quarter: 2021Q4

REPORT INFORMATION
  Report Type: Spontaneous
  Country: DE (occurrence: DE)
  Receive Date: 20211116
  Receipt Date: 20211116
  Transmission Date: 20220304
  Serious: Yes (Other)
  Sender: FDA-Public Use
  Company Number: DE-002147023-NVSC2021DE187473

PATIENT
  Age: 6 Month
  Sex: Male

DRUGS (3)
  1. EVEROLIMUS [Suspect]
     Active Substance: EVEROLIMUS
     Indication: Cardiac failure
     Dosage: 0.2 MILLIGRAM/KILOGRAM, QD
  2. EVEROLIMUS [Suspect]
     Active Substance: EVEROLIMUS
     Indication: Right ventricle outflow tract obstruction
  3. EVEROLIMUS [Suspect]
     Active Substance: EVEROLIMUS
     Indication: Left ventricle outflow tract obstruction

REACTIONS (3)
  - Mitral valve incompetence [Recovering/Resolving]
  - Off label use [Unknown]
  - Pruritus [Unknown]
